FAERS Safety Report 4393066-9 (Version None)
Quarter: 2004Q3

REPORT INFORMATION
  Report Type: 
  Country: None (occurrence: None)
  Receive Date: 20040708
  Receipt Date: 20040520
  Transmission Date: 20050211
  Serious: Yes (Other)
  Sender: FDA-Public Use
  Company Number: PHBS2004BR06750

PATIENT
  Age: 43 Year
  Sex: Female
  Weight: 63 kg

DRUGS (5)
  1. SANDOSTATIN LAR [Suspect]
     Indication: HYPOTHALAMO-PITUITARY DISORDERS
     Dosage: 10 MG, QMO
  2. SANDOSTATIN [Suspect]
     Indication: HYPOTHALAMO-PITUITARY DISORDERS
     Dosage: 0.5 MG/DAY
     Dates: start: 20021201
  3. SANDOSTATIN [Suspect]
     Dosage: 0.5 MG/DAY
  4. AAS [Concomitant]
  5. HYDROCHLOROTHIAZIDE [Concomitant]

REACTIONS (4)
  - DRUG EXPOSURE DURING PREGNANCY [None]
  - NAUSEA [None]
  - NODULE [None]
  - PREMATURE BABY [None]
